FAERS Safety Report 19603010 (Version 1)
Quarter: 2021Q3

REPORT INFORMATION
  Report Type: Spontaneous
  Country: US (occurrence: US)
  Receive Date: 20210723
  Receipt Date: 20210723
  Transmission Date: 20211014
  Serious: No
  Sender: FDA-Public Use
  Company Number: US-GW PHARMA-202107USGW03538

PATIENT

DRUGS (2)
  1. EPIDIOLEX [Suspect]
     Active Substance: CANNABIDIOL
     Indication: LENNOX-GASTAUT SYNDROME
     Dosage: 500 MILLIGRAM, BID (TWICE DURING A RECENT SEIZURE CLUSTER, SHE WAS ADVISED TO GIVE AN EXTRA DOSE OF
     Route: 048
     Dates: start: 201912
  2. EPIDIOLEX [Suspect]
     Active Substance: CANNABIDIOL
     Indication: STATUS EPILEPTICUS

REACTIONS (4)
  - Off label use [Unknown]
  - Seizure cluster [Recovering/Resolving]
  - Seizure [Unknown]
  - Extra dose administered [Unknown]

NARRATIVE: CASE EVENT DATE: 2021
